FAERS Safety Report 23548177 (Version 1)
Quarter: 2024Q1

REPORT INFORMATION
  Report Type: Spontaneous
  Country: US (occurrence: US)
  Receive Date: 20240221
  Receipt Date: 20240221
  Transmission Date: 20240410
  Serious: Yes (Hospitalization)
  Sender: FDA-Public Use
  Company Number: US-INTRA-CELLULAR THERAPIES, INC.-2024ICT00244

PATIENT
  Age: 68 Year
  Sex: Female

DRUGS (8)
  1. CAPLYTA [Suspect]
     Active Substance: LUMATEPERONE
     Indication: Bipolar disorder
     Dosage: 42 MG
  2. CAPLYTA [Suspect]
     Active Substance: LUMATEPERONE
     Dosage: 21 MG
  3. HEROIN [Suspect]
     Active Substance: DIAMORPHINE
  4. COCAINE [Suspect]
     Active Substance: COCAINE
  5. DEPAKOTE [Concomitant]
     Active Substance: DIVALPROEX SODIUM
  6. LITHIUM [Concomitant]
     Active Substance: LITHIUM
  7. ARIPIPRAZOLE [Concomitant]
     Active Substance: ARIPIPRAZOLE
  8. CLOZARIL [Concomitant]
     Active Substance: CLOZAPINE

REACTIONS (3)
  - Psychotic disorder [Unknown]
  - Drug dependence [Unknown]
  - Feeling jittery [Unknown]
